FAERS Safety Report 5725436-8 (Version None)
Quarter: 2008Q2

REPORT INFORMATION
  Report Type: 
  Country: None (occurrence: None)
  Receive Date: 20080501
  Receipt Date: 20080421
  Transmission Date: 20081010
  Serious: Yes (Hospitalization)
  Sender: FDA-Public Use
  Company Number: SE-PFIZER INC-2008034555

PATIENT
  Sex: Male

DRUGS (2)
  1. ALFADIL [Suspect]
     Indication: HYPERTENSION
     Route: 048
  2. EMCONCOR [Suspect]
     Indication: HYPERTENSION
     Route: 048

REACTIONS (1)
  - ELECTROCARDIOGRAM QT PROLONGED [None]
